FAERS Safety Report 7930515-0 (Version None)
Quarter: 2011Q4

REPORT INFORMATION
  Report Type: 
  Country: None (occurrence: None)
  Receive Date: 20111121
  Receipt Date: 20111115
  Transmission Date: 20120403
  Serious: Yes (Death)
  Sender: FDA-Public Use
  Company Number: US-CELGENEUS-163-21880-11053026

PATIENT
  Sex: Male

DRUGS (15)
  1. LASIX [Concomitant]
     Route: 065
  2. OXYCODONE HCL [Concomitant]
     Dosage: 10 MILLIGRAM
     Route: 065
     Dates: start: 20110211
  3. DEXAMETHASONE [Concomitant]
     Dosage: 4 MILLIGRAM
     Route: 048
  4. TERAZOSIN HCL [Concomitant]
     Dosage: 200 MILLIGRAM
     Route: 048
  5. IBUPROFEN [Concomitant]
     Route: 048
  6. COUMADIN [Concomitant]
     Dosage: 5 MILLIGRAM
     Route: 048
  7. REVLIMID [Suspect]
     Dosage: 25 MILLIGRAM
     Route: 048
     Dates: start: 20110506, end: 20110501
  8. FUROSEMIDE [Concomitant]
     Dosage: 20 MILLIGRAM
     Route: 048
     Dates: start: 20110329
  9. TEMAZEPAM [Concomitant]
     Dosage: 15 MILLIGRAM
     Route: 048
     Dates: start: 20110329
  10. NUCYNTA [Concomitant]
     Route: 065
  11. PROCHLORPERAZINE [Concomitant]
     Route: 048
  12. ACYCLOVIR [Concomitant]
     Dosage: 400 MILLIGRAM
     Route: 048
     Dates: start: 20110228
  13. CHERATUSSIN AC [Concomitant]
     Dosage: 120 MILLIGRAM
     Route: 048
     Dates: start: 20110228
  14. POTASSIUM CHLORIDE [Concomitant]
     Dosage: 20 MILLIEQUIVALENTS
     Route: 048
     Dates: start: 20110329
  15. HYDROCODONE BITARTRATE [Concomitant]
     Dosage: 500 MILLIGRAM
     Route: 048

REACTIONS (1)
  - MULTIPLE MYELOMA [None]
